FAERS Safety Report 6969106-7 (Version None)
Quarter: 2010Q3

REPORT INFORMATION
  Report Type: 
  Country: None (occurrence: None)
  Receive Date: 20100907
  Receipt Date: 20100505
  Transmission Date: 20110219
  Serious: Yes (Other)
  Sender: FDA-Public Use
  Company Number: DE-CUBIST-2010S1001348

PATIENT
  Age: 72 Year
  Sex: Male
  Weight: 55 kg

DRUGS (4)
  1. CUBICIN [Suspect]
     Indication: PROCEDURAL SITE REACTION
     Route: 042
     Dates: end: 20080101
  2. CIPROFLOXACIN [Concomitant]
     Indication: PRODUCT USED FOR UNKNOWN INDICATION
  3. IMIPENEM [Concomitant]
     Indication: PRODUCT USED FOR UNKNOWN INDICATION
  4. VANCOMYCIN [Concomitant]
     Indication: PRODUCT USED FOR UNKNOWN INDICATION

REACTIONS (3)
  - BLOOD CREATINE PHOSPHOKINASE INCREASED [None]
  - POST PROCEDURAL INFECTION [None]
  - RENAL FAILURE CHRONIC [None]
